FAERS Safety Report 6851431-1 (Version None)
Quarter: 2010Q3

REPORT INFORMATION
  Report Type: 
  Country: None (occurrence: None)
  Receive Date: 20100717
  Receipt Date: 20080327
  Transmission Date: 20110219
  Serious: No
  Sender: FDA-Public Use
  Company Number: US-PFIZER INC-2008005085

PATIENT
  Age: 55 Year
  Sex: Female
  Weight: 65.8 kg

DRUGS (1)
  1. CHANTIX [Suspect]
     Indication: SMOKING CESSATION THERAPY
     Dates: start: 20080109

REACTIONS (6)
  - DIARRHOEA [None]
  - FLATULENCE [None]
  - FLUID RETENTION [None]
  - GASTROINTESTINAL DISORDER [None]
  - INCORRECT DOSE ADMINISTERED [None]
  - WRONG DRUG ADMINISTERED [None]
